FAERS Safety Report 9523020 (Version 1)
Quarter: 2013Q1

REPORT INFORMATION
  Report Type: Spontaneous
  Country: US (occurrence: None)
  Receive Date: 20130305
  Receipt Date: 20130305
  Transmission Date: 20140127
  Serious: Yes (Hospitalization)
  Sender: FDA-Public Use
  Company Number: 163-21880-12031912

PATIENT
  Age: 63 Year
  Sex: Male

DRUGS (7)
  1. REVLIMID [Suspect]
     Indication: PLASMA CELL MYELOMA
     Dosage: 25 MG, 1 IN 1 D, PO
     Route: 048
     Dates: start: 200610
  2. ASPRIRIN (ACETYLSALICYLIC ACID) [Concomitant]
     Dates: start: 200610
  3. ACYCLOVIR (ACICLOVIR) (ACICLOVIR) [Concomitant]
  4. PERCODAN (PERCODAN) [Concomitant]
  5. LORAZEPAM (LORAZEPAM) [Concomitant]
  6. DECADRON (DEXAMETHASONE) [Concomitant]
  7. BIAXIN (CLARITHROMYCIN) [Concomitant]

REACTIONS (1)
  - Myocardial infarction [None]
